FAERS Safety Report 13302512 (Version 1)
Quarter: 2017Q1

REPORT INFORMATION
  Report Type: Spontaneous
  Country: PL (occurrence: PL)
  Receive Date: 20170307
  Receipt Date: 20170307
  Transmission Date: 20170428
  Serious: Yes (Death, Other)
  Sender: FDA-Public Use
  Company Number: PL-TEVA-744164ISR

PATIENT
  Age: 58 Year
  Sex: Female
  Weight: 97 kg

DRUGS (2)
  1. CARBOPLATIN. [Suspect]
     Active Substance: CARBOPLATIN
     Indication: OVARIAN CANCER
     Dosage: 665 MILLIGRAM DAILY;
     Route: 042
     Dates: start: 20170125, end: 20170125
  2. PACLITAXEL KABI [Suspect]
     Active Substance: PACLITAXEL
     Indication: OVARIAN CANCER
     Dosage: 378 MILLIGRAM DAILY;
     Route: 042
     Dates: start: 20170125, end: 20170125

REACTIONS (3)
  - Neutropenia [Not Recovered/Not Resolved]
  - Sepsis [Fatal]
  - Febrile neutropenia [Not Recovered/Not Resolved]

NARRATIVE: CASE EVENT DATE: 20170129
